FAERS Safety Report 6910812-8 (Version None)
Quarter: 2010Q3

REPORT INFORMATION
  Report Type: 
  Country: None (occurrence: None)
  Receive Date: 20100806
  Receipt Date: 20100802
  Transmission Date: 20110219
  Serious: Yes (Congenital Anomaly)
  Sender: FDA-Public Use
  Company Number: BR-SANOFI-AVENTIS-2010SA035650

PATIENT

DRUGS (2)
  1. LANTUS [Suspect]
     Indication: DIABETIC RELATIVE
     Route: 064
     Dates: start: 20060101
  2. OPTIPEN [Suspect]
     Dates: start: 20060101

REACTIONS (2)
  - ANENCEPHALY [None]
  - DRUG EXPOSURE DURING PREGNANCY [None]
